FAERS Safety Report 12236689 (Version 2)
Quarter: 2016Q2

REPORT INFORMATION
  Report Type: Spontaneous
  Country: US (occurrence: US)
  Receive Date: 20160405
  Receipt Date: 20160425
  Transmission Date: 20160815
  Serious: Yes (Life-Threatening, Hospitalization, Other)
  Sender: FDA-Public Use
  Company Number: US-JNJFOC-20160326308

PATIENT
  Age: 36 Year
  Sex: Male
  Weight: 64.41 kg

DRUGS (15)
  1. XANAX [Concomitant]
     Active Substance: ALPRAZOLAM
     Route: 048
  2. OXYCONTIN [Concomitant]
     Active Substance: OXYCODONE HYDROCHLORIDE
     Route: 048
  3. NOVOLOG [Concomitant]
     Active Substance: INSULIN ASPART
     Route: 050
  4. LANTUS [Concomitant]
     Active Substance: INSULIN GLARGINE
     Indication: TYPE 1 DIABETES MELLITUS
     Route: 058
  5. INVOKANA [Suspect]
     Active Substance: CANAGLIFLOZIN
     Indication: TYPE 1 DIABETES MELLITUS
     Route: 048
     Dates: start: 20160315, end: 20160318
  6. PRILOSEC [Concomitant]
     Active Substance: OMEPRAZOLE MAGNESIUM
     Route: 048
  7. LASIX [Concomitant]
     Active Substance: FUROSEMIDE
     Route: 048
  8. LEXAPRO [Concomitant]
     Active Substance: ESCITALOPRAM OXALATE
     Route: 048
  9. TOUJEO [Concomitant]
     Active Substance: INSULIN GLARGINE
     Dosage: 10-12 UNITS
     Route: 058
  10. LANTUS [Concomitant]
     Active Substance: INSULIN GLARGINE
     Indication: TYPE 1 DIABETES MELLITUS
     Route: 058
     Dates: start: 1982
  11. NOVOLOG [Concomitant]
     Active Substance: INSULIN ASPART
     Dosage: AC
     Route: 058
  12. ST. JOSEPH ASPIRIN [Concomitant]
     Route: 048
  13. NOVOLOG [Concomitant]
     Active Substance: INSULIN ASPART
     Indication: TYPE 1 DIABETES MELLITUS
     Dosage: MEAL COVERAGE= 1:12; CORRECTION B.S.-100/30
     Route: 058
     Dates: start: 1982
  14. NICODERM CQ [Concomitant]
     Active Substance: NICOTINE
     Route: 062
  15. SYNTHROID [Concomitant]
     Active Substance: LEVOTHYROXINE SODIUM
     Route: 048

REACTIONS (11)
  - Glomerular filtration rate decreased [Recovering/Resolving]
  - Off label use [Unknown]
  - Hypotension [Recovered/Resolved]
  - Product use issue [Unknown]
  - Drug ineffective for unapproved indication [Unknown]
  - Hypoglycaemia [Unknown]
  - Metabolic acidosis [Recovered/Resolved]
  - Liver function test abnormal [Recovered/Resolved]
  - Hyperkalaemia [Recovered/Resolved]
  - Skin ulcer [Recovered/Resolved]
  - Treatment noncompliance [Unknown]

NARRATIVE: CASE EVENT DATE: 201603
